FAERS Safety Report 23605048 (Version 1)
Quarter: 2024Q1

REPORT INFORMATION
  Report Type: Spontaneous
  Country: US (occurrence: None)
  Receive Date: 20240306
  Receipt Date: 20240306
  Transmission Date: 20240410
  Serious: Yes (Other)
  Sender: FDA-Public Use
  Company Number: None

PATIENT
  Age: 44 Year
  Sex: Female
  Weight: 49.5 kg

DRUGS (4)
  1. TEPEZZA [Suspect]
     Active Substance: TEPROTUMUMAB-TRBW
     Indication: Endocrine ophthalmopathy
     Dosage: OTHER FREQUENCY : EVERY 3 WEEKS;?
     Route: 041
     Dates: start: 20231127, end: 20240228
  2. lisinopril 2.5mg daily [Concomitant]
  3. methimazole 10mg daily [Concomitant]
  4. artificial tears prn [Concomitant]

REACTIONS (5)
  - Infusion related reaction [None]
  - Chest discomfort [None]
  - Wheezing [None]
  - Pharyngeal swelling [None]
  - Heart rate abnormal [None]

NARRATIVE: CASE EVENT DATE: 20240222
